FAERS Safety Report 14950010 (Version 1)
Quarter: 2018Q2

REPORT INFORMATION
  Report Type: Spontaneous
  Country: FR (occurrence: FR)
  Receive Date: 20180530
  Receipt Date: 20180530
  Transmission Date: 20180711
  Serious: Yes (Other)
  Sender: FDA-Public Use
  Company Number: FR-MERCK KGAA-2048639

PATIENT
  Age: 31 Year
  Sex: Female

DRUGS (1)
  1. NOVOTHYROX [Suspect]
     Active Substance: LEVOTHYROXINE SODIUM
     Indication: PRODUCT USED FOR UNKNOWN INDICATION
     Dates: start: 201704

REACTIONS (15)
  - Bipolar disorder [None]
  - Disturbance in attention [None]
  - Decreased activity [None]
  - Marital problem [None]
  - Impaired work ability [None]
  - Headache [None]
  - Skin discolouration [None]
  - Muscle spasms [None]
  - Social avoidant behaviour [None]
  - Anti-thyroid antibody positive [None]
  - Fatigue [None]
  - Dizziness [None]
  - Impatience [None]
  - Alopecia [None]
  - Irritability [None]

NARRATIVE: CASE EVENT DATE: 201704
